FAERS Safety Report 14273372 (Version 3)
Quarter: 2019Q2

REPORT INFORMATION
  Report Type: Report from Study
  Country: US (occurrence: US)
  Receive Date: 20171211
  Receipt Date: 20190402
  Transmission Date: 20190711
  Serious: Yes (Death, Hospitalization, Other)
  Sender: FDA-Public Use
  Company Number: US-BRISTOL-MYERS SQUIBB COMPANY-BMS-2017-111345

PATIENT
  Age: 72 Year
  Sex: Female
  Weight: 54.7 kg

DRUGS (4)
  1. NIVOLUMAB [Suspect]
     Active Substance: NIVOLUMAB
     Indication: PRODUCT USED FOR UNKNOWN INDICATION
     Dosage: 194.7 MG, UNK
     Route: 042
     Dates: start: 20170524
  2. IPILIMUMAB [Suspect]
     Active Substance: IPILIMUMAB
     Indication: SQUAMOUS CELL CARCINOMA OF LUNG
     Dosage: 1 MG/KG, UNK
     Route: 042
     Dates: start: 20170126
  3. IPILIMUMAB [Suspect]
     Active Substance: IPILIMUMAB
     Indication: PRODUCT USED FOR UNKNOWN INDICATION
     Dosage: 64.9 MG, UNK
     Route: 042
     Dates: start: 20170420
  4. NIVOLUMAB [Suspect]
     Active Substance: NIVOLUMAB
     Indication: SQUAMOUS CELL CARCINOMA OF LUNG
     Dosage: 3 MG/KG, UNK
     Route: 042
     Dates: start: 20170126

REACTIONS (2)
  - Malignant neoplasm progression [Fatal]
  - Confusional state [Unknown]

NARRATIVE: CASE EVENT DATE: 20170601
